FAERS Safety Report 21140379 (Version 2)
Quarter: 2022Q3

REPORT INFORMATION
  Report Type: Spontaneous
  Country: US (occurrence: US)
  Receive Date: 20220728
  Receipt Date: 20220825
  Transmission Date: 20221027
  Serious: Yes (Other)
  Sender: FDA-Public Use
  Company Number: CID000000000026699

PATIENT
  Age: 61 Year
  Sex: Male

DRUGS (1)
  1. COPAXONE [Suspect]
     Active Substance: GLATIRAMER ACETATE
     Indication: Product used for unknown indication
     Dosage: UNIT DOSE: 20 MG/ML
     Route: 065

REACTIONS (2)
  - Necrosis [Unknown]
  - Pyrexia [Unknown]
